FAERS Safety Report 18020410 (Version 4)
Quarter: 2020Q3

REPORT INFORMATION
  Report Type: Spontaneous
  Country: FR (occurrence: FR)
  Receive Date: 20200714
  Receipt Date: 20200805
  Transmission Date: 20201103
  Serious: Yes (Hospitalization)
  Sender: FDA-Public Use
  Company Number: FR-MYLANLABS-2020M1064080

PATIENT
  Age: 39 Year
  Sex: Male

DRUGS (4)
  1. LEXOMIL [Suspect]
     Active Substance: BROMAZEPAM
     Indication: PRODUCT USED FOR UNKNOWN INDICATION
     Dosage: UNK, AS NEEDED (OCCASIONALLY) HIGH DOSE
     Dates: start: 1992, end: 1995
  2. MIDAZOLAM. [Suspect]
     Active Substance: MIDAZOLAM
     Indication: WITHDRAWAL SYNDROME
     Dosage: 3 MILLIGRAM
     Route: 042
     Dates: start: 199511
  3. XANAX [Suspect]
     Active Substance: ALPRAZOLAM
     Indication: PRODUCT USED FOR UNKNOWN INDICATION
     Dosage: 10 DF, DAILY (10 X 0.5 MG DAILY) HIGH DOSE TABLETS, CHAQUE JOUR UNE DIZAINE DE COMPRIM?S D^ ALPRAZOL
     Dates: start: 1992, end: 1995
  4. ATARAX [Suspect]
     Active Substance: HYDROXYZINE HYDROCHLORIDE
     Indication: PRODUCT USED FOR UNKNOWN INDICATION
     Dosage: 200 MILLIGRAM (ALWAYS IN THE EVENING AT BEDTIME 200 MG   )
     Dates: start: 1992, end: 1995

REACTIONS (9)
  - Hyperhidrosis [Recovered/Resolved]
  - Headache [Recovered/Resolved]
  - Drug withdrawal syndrome [Recovered/Resolved]
  - Photophobia [Recovered/Resolved]
  - Product use in unapproved indication [Recovered/Resolved]
  - Abdominal pain [Recovered/Resolved]
  - Vertigo [Recovered/Resolved]
  - Vomiting [Recovered/Resolved]
  - Anxiety [Recovered/Resolved]

NARRATIVE: CASE EVENT DATE: 199511
